FAERS Safety Report 8414898-3 (Version None)
Quarter: 2012Q2

REPORT INFORMATION
  Report Type: 
  Country: None (occurrence: None)
  Receive Date: 20120601
  Receipt Date: 20120601
  Transmission Date: 20120825
  Serious: No
  Sender: FDA-Public Use
  Company Number: None

PATIENT
  Age: 86 Year
  Sex: Male
  Weight: 58.9676 kg

DRUGS (1)
  1. TRAMADOL HCL [Suspect]
     Dosage: 50 MG ONLY OCCASIONAL ? PILL BY MOUTH
     Route: 048
     Dates: start: 20090725

REACTIONS (7)
  - ASTHENIA [None]
  - UNEVALUABLE EVENT [None]
  - EUPHORIC MOOD [None]
  - ENERGY INCREASED [None]
  - ABNORMAL DREAMS [None]
  - AFFECTIVE DISORDER [None]
  - CONSTIPATION [None]
